FAERS Safety Report 22149956 (Version 1)
Quarter: 2023Q1

REPORT INFORMATION
  Report Type: Spontaneous
  Country: JP (occurrence: JP)
  Receive Date: 20230329
  Receipt Date: 20230329
  Transmission Date: 20230417
  Serious: Yes (Other)
  Sender: FDA-Public Use
  Company Number: JP-CHEMOCENTRYX, INC.-2023JPCCXI0690

PATIENT

DRUGS (17)
  1. TAVNEOS [Suspect]
     Active Substance: AVACOPAN
     Indication: Microscopic polyangiitis
     Dosage: 30 MG BID. (30 MG, 2 IN 1 D)
     Route: 048
     Dates: start: 20221205
  2. IMURAN [Suspect]
     Active Substance: AZATHIOPRINE
     Indication: Microscopic polyangiitis
     Dosage: 25 MG, QD. (1 IN 1 D)
     Route: 048
     Dates: start: 20221219
  3. IMURAN [Suspect]
     Active Substance: AZATHIOPRINE
     Dosage: INCREASED TO 50 MG QD. (1 IN 1 D)
     Route: 048
     Dates: end: 20230115
  4. URAPIDIL [Concomitant]
     Active Substance: URAPIDIL
     Indication: Neurogenic bladder
     Dosage: 15 MG, BID (15 MG, 2 IN 1 D)
     Route: 048
     Dates: start: 20221213, end: 20230113
  5. BISOPROLOL FUMARATE [Concomitant]
     Active Substance: BISOPROLOL FUMARATE
     Indication: Hypertension
     Dosage: 2.5 MG
     Route: 048
  6. ROSUVASTATIN [Concomitant]
     Active Substance: ROSUVASTATIN
     Indication: Dyslipidaemia
     Dosage: 2.5 MG
     Route: 048
  7. VONOPRAZAN FUMARATE [Concomitant]
     Active Substance: VONOPRAZAN FUMARATE
     Indication: Prophylaxis against gastrointestinal ulcer
     Dosage: 10 MG
     Route: 048
     Dates: start: 20221029, end: 20230201
  8. ONEALFA [Concomitant]
     Active Substance: ALFACALCIDOL
     Indication: Chronic kidney disease-mineral and bone disorder
     Dosage: 0.25 MCG
     Route: 048
     Dates: start: 20221103
  9. CALCIUM LACTATE PENTAHYDRATE [Concomitant]
     Active Substance: CALCIUM LACTATE PENTAHYDRATE
     Indication: Chronic kidney disease-mineral and bone disorder
     Dosage: 0.5 MG
     Route: 048
     Dates: end: 20230201
  10. ETIZOLAM [Concomitant]
     Active Substance: ETIZOLAM
     Indication: Anxiety disorder
     Dosage: 1 MG
     Route: 048
     Dates: start: 20221104
  11. SAMSCA [Concomitant]
     Active Substance: TOLVAPTAN
     Indication: Cardiac failure
     Dosage: 15 MG
     Route: 048
     Dates: start: 20221031, end: 20221221
  12. NIFEDIPINE [Concomitant]
     Active Substance: NIFEDIPINE
     Indication: Hypertension
     Dosage: CR
     Route: 048
     Dates: start: 20221107, end: 20230208
  13. AZOSEMIDE [Concomitant]
     Active Substance: AZOSEMIDE
     Indication: Cardiac failure
     Dosage: 60 MG
     Route: 048
     Dates: start: 20221205
  14. FUROSEMIDE [Concomitant]
     Active Substance: FUROSEMIDE
     Indication: Cardiac failure
     Dosage: 80 MG
     Route: 048
     Dates: start: 20221205
  15. TRICHLORMETHIAZIDE [Concomitant]
     Active Substance: TRICHLORMETHIAZIDE
     Indication: Hypertension
     Dosage: 2 MG
     Route: 048
     Dates: start: 20221111
  16. PREDONINE [Concomitant]
     Active Substance: PREDNISOLONE
     Indication: Microscopic polyangiitis
     Dosage: 25 MG
     Route: 048
     Dates: start: 20221107
  17. PREDONINE [Concomitant]
     Active Substance: PREDNISOLONE
     Dosage: 25 MG
     Route: 048
     Dates: end: 20230115

REACTIONS (5)
  - Deep vein thrombosis [Recovering/Resolving]
  - Oedema peripheral [Recovering/Resolving]
  - Feeling hot [Recovering/Resolving]
  - Inflammation [Recovering/Resolving]
  - Pyrexia [Recovered/Resolved]

NARRATIVE: CASE EVENT DATE: 20230108
